FAERS Safety Report 7683831-4 (Version None)
Quarter: 2011Q3

REPORT INFORMATION
  Report Type: 
  Country: None (occurrence: None)
  Receive Date: 20110815
  Receipt Date: 20110804
  Transmission Date: 20111222
  Serious: Yes (Other)
  Sender: FDA-Public Use
  Company Number: FR-BAXTER-2011BH025909

PATIENT
  Age: 65 Year
  Sex: Female

DRUGS (10)
  1. DOCETAXEL [Suspect]
     Route: 042
     Dates: start: 20110519, end: 20110519
  2. EMEND [Suspect]
     Route: 048
     Dates: start: 20110610, end: 20110611
  3. DOCETAXEL [Suspect]
     Route: 042
     Dates: start: 20110609, end: 20110609
  4. CYCLOPHOSPHAMIDE [Suspect]
     Indication: BREAST CANCER
     Route: 042
     Dates: start: 20110428, end: 20110428
  5. CYCLOPHOSPHAMIDE [Suspect]
     Route: 042
     Dates: start: 20110519, end: 20110519
  6. CYCLOPHOSPHAMIDE [Suspect]
     Route: 042
     Dates: start: 20110609, end: 20110609
  7. DOCETAXEL [Suspect]
     Indication: BREAST CANCER
     Route: 042
     Dates: start: 20110428, end: 20110428
  8. ONDANSERTRON HYDROCHLORIDE [Concomitant]
     Indication: PRODUCT USED FOR UNKNOWN INDICATION
     Route: 065
  9. EMEND [Suspect]
     Indication: BREAST CANCER
     Route: 048
     Dates: start: 20110609, end: 20110609
  10. PRIMPERAN TAB [Concomitant]
     Indication: PRODUCT USED FOR UNKNOWN INDICATION
     Route: 042
     Dates: start: 20110428, end: 20110609

REACTIONS (7)
  - RASH [None]
  - DECREASED APPETITE [None]
  - PARAESTHESIA [None]
  - NEUTROPENIA [None]
  - ASTHENIA [None]
  - MUCOSAL INFLAMMATION [None]
  - MUSCULAR WEAKNESS [None]
